FAERS Safety Report 8461252-4 (Version None)
Quarter: 2012Q2

REPORT INFORMATION
  Report Type: 
  Country: None (occurrence: None)
  Receive Date: 20120619
  Receipt Date: 20120619
  Transmission Date: 20120825
  Serious: Yes (Other)
  Sender: FDA-Public Use
  Company Number: None

PATIENT
  Sex: Female

DRUGS (2)
  1. OMEPRAZOLE [Suspect]
     Indication: INCREASED UPPER AIRWAY SECRETION
     Dosage: 20 MG ONCE A NIGHT PO
     Route: 048
     Dates: start: 20120607, end: 20120612
  2. OMEPRAZOLE [Suspect]
     Indication: COUGH
     Dosage: 20 MG ONCE A NIGHT PO
     Route: 048
     Dates: start: 20120607, end: 20120612

REACTIONS (4)
  - VISUAL ACUITY REDUCED [None]
  - OROPHARYNGEAL PAIN [None]
  - DRY THROAT [None]
  - BLINDNESS [None]
